FAERS Safety Report 10006745 (Version 1)
Quarter: 2014Q1

REPORT INFORMATION
  Report Type: Spontaneous
  Country: US (occurrence: None)
  Receive Date: 20140311
  Receipt Date: 20140311
  Transmission Date: 20141002
  Serious: Yes (Hospitalization)
  Sender: FDA-Public Use
  Company Number: 2014STPI000091

PATIENT
  Age: 38 Year
  Sex: Female

DRUGS (10)
  1. ONCASPAR [Suspect]
     Indication: LYMPHOMA
     Route: 030
     Dates: start: 20140214, end: 20140214
  2. DEXAMETHASONE SODIUM PHOSPHATE [Suspect]
     Indication: LYMPHOMA
     Dates: start: 20140212, end: 20140215
  3. ATIVAN (LORAZEPAM) [Concomitant]
  4. ZOFRAN (ONDANSETRON HYDROCHLORIDE) [Concomitant]
  5. COMPAZINE (PROCHLORPERAZINE EDISYLATE) [Concomitant]
  6. ACYCLOVIR (ACICLOVIR) (ACICLOVIR) [Concomitant]
  7. ERGOCALCIFEROL (ERGOCALCIFEROL) [Concomitant]
  8. POTASSIUM CHLORIDE (POTASSIUM CHLORIDE) [Concomitant]
  9. PRILOSEC (OMEPRAZOLE MAGNESIUM) [Concomitant]
  10. LOVENOX (ENOXAPARIN SODIUM) [Concomitant]

REACTIONS (3)
  - Generalised oedema [None]
  - Abdominal distension [None]
  - Blood albumin decreased [None]
